FAERS Safety Report 9283673 (Version 5)
Quarter: 2015Q1

REPORT INFORMATION
  Report Type: Spontaneous
  Country: US (occurrence: US)
  Receive Date: 20130510
  Receipt Date: 20150319
  Transmission Date: 20150721
  Serious: Yes (Hospitalization, Other)
  Sender: FDA-Public Use
  Company Number: US-GLAXOSMITHKLINE-A1009205A

PATIENT
  Sex: Male

DRUGS (8)
  1. FLOLAN [Suspect]
     Active Substance: EPOPROSTENOL SODIUM
     Dosage: UNK
     Dates: start: 20071018
  2. FLOLAN [Suspect]
     Active Substance: EPOPROSTENOL SODIUM
     Dosage: UNK
     Dates: start: 20071018
  3. FLOLAN [Suspect]
     Active Substance: EPOPROSTENOL SODIUM
     Dosage: UNK
     Dates: start: 20071018
  4. FLOLAN [Suspect]
     Active Substance: EPOPROSTENOL SODIUM
     Indication: PULMONARY ARTERIAL HYPERTENSION
     Dosage: 53 NG/KG/MIN,75,000 CONCENTRATION,1.5MG VIAL.49.3 NG/KG/MIN,75,000 CONCENTRATION,1.5MG VIAL, PU[...]
     Route: 042
     Dates: start: 20070924
  5. FLOLAN [Suspect]
     Active Substance: EPOPROSTENOL SODIUM
     Dosage: UNK
  6. FLOLAN [Suspect]
     Active Substance: EPOPROSTENOL SODIUM
     Dosage: 50.3 NG/KG/MIN
  7. REVATIO [Concomitant]
     Active Substance: SILDENAFIL CITRATE
  8. TRACLEER [Concomitant]
     Active Substance: BOSENTAN\BOSENTAN MONOHYDRATE

REACTIONS (6)
  - Hospitalisation [Unknown]
  - Central venous catheterisation [Unknown]
  - Gastrointestinal haemorrhage [Unknown]
  - Medical device complication [Unknown]
  - Catheterisation cardiac [Unknown]
  - Bronchitis [Unknown]

NARRATIVE: CASE EVENT DATE: 2013
